FAERS Safety Report 5493643-8 (Version None)
Quarter: 2007Q4

REPORT INFORMATION
  Report Type: 
  Country: None (occurrence: None)
  Receive Date: 20071015
  Receipt Date: 20070831
  Transmission Date: 20080405
  Serious: No
  Sender: FDA-Public Use
  Company Number: 2007SP003083

PATIENT
  Age: 65 Year
  Sex: Female
  Weight: 65.7716 kg

DRUGS (3)
  1. LUNESTA [Suspect]
     Indication: INSOMNIA
     Dosage: 2 MG; HS; ORAL
     Route: 048
     Dates: start: 20070801, end: 20070801
  2. NEURONTIN [Concomitant]
  3. TOPROL-XL [Concomitant]

REACTIONS (3)
  - ABNORMAL DREAMS [None]
  - PARADOXICAL DRUG REACTION [None]
  - THINKING ABNORMAL [None]
